FAERS Safety Report 4791433-2 (Version None)
Quarter: 2005Q4

REPORT INFORMATION
  Report Type: 
  Country: None (occurrence: None)
  Receive Date: 20051007
  Receipt Date: 20050829
  Transmission Date: 20060501
  Serious: Yes (Hospitalization)
  Sender: FDA-Public Use
  Company Number: US-ROCHE-416100

PATIENT
  Age: 49 Year
  Sex: Female
  Weight: 68 kg

DRUGS (2)
  1. PEGASYS [Suspect]
     Indication: HEPATITIS C
     Route: 058
     Dates: start: 20050504
  2. COPEGUS [Suspect]
     Indication: HEPATITIS C
     Dosage: DAILY.
     Route: 048
     Dates: start: 20050504

REACTIONS (2)
  - ARTERIAL OCCLUSIVE DISEASE [None]
  - CHEST PAIN [None]
